FAERS Safety Report 11579614 (Version 3)
Quarter: 2015Q4

REPORT INFORMATION
  Report Type: Spontaneous
  Country: US (occurrence: US)
  Receive Date: 20150930
  Receipt Date: 20151006
  Transmission Date: 20160304
  Serious: Yes (Death)
  Sender: FDA-Public Use
  Company Number: PHHY2015US117676

PATIENT
  Age: 61 Year
  Sex: Male

DRUGS (6)
  1. LEVOTHYROXINE. [Concomitant]
     Active Substance: LEVOTHYROXINE
     Indication: HYPOTHYROIDISM
     Route: 065
  2. DIVALPROEX SODIUM. [Concomitant]
     Active Substance: DIVALPROEX SODIUM
     Indication: SEIZURE
     Dosage: 1000 MG, QD
     Route: 065
  3. DORZOLAMIDE W/TIMOLOL [Concomitant]
     Indication: GLAUCOMA
     Route: 047
  4. CLOZAPINE. [Suspect]
     Active Substance: CLOZAPINE
     Indication: SCHIZOPHRENIA
     Dosage: 150 MG, BID (MORNING AND EVENING)
     Route: 065
  5. CLOZAPINE. [Suspect]
     Active Substance: CLOZAPINE
     Dosage: 325 MG (150 MG MORNING AND 175 MG EVENING), UNK
     Route: 065
  6. LEVETIRACETAM. [Concomitant]
     Active Substance: LEVETIRACETAM
     Indication: SEIZURE
     Dosage: 750 MG, BID
     Route: 065

REACTIONS (10)
  - Bacterial translocation [Fatal]
  - Intestinal infarction [Fatal]
  - Cardiac arrest [Fatal]
  - Intestinal obstruction [Fatal]
  - Faecaloma [Fatal]
  - Abdominal sepsis [Fatal]
  - Syncope [Fatal]
  - Hypotension [Fatal]
  - Constipation [Fatal]
  - Septic shock [Fatal]
